FAERS Safety Report 25996547 (Version 2)
Quarter: 2025Q4

REPORT INFORMATION
  Report Type: Spontaneous
  Country: JP (occurrence: None)
  Receive Date: 20251104
  Receipt Date: 20251126
  Transmission Date: 20260117
  Serious: Yes (Other)
  Sender: AMERICAN REGENT
  Company Number: JP-AMERICAN REGENT INC-2025003948

PATIENT
  Age: 18 Year
  Sex: Female

DRUGS (3)
  1. FERINJECT [Suspect]
     Active Substance: FERRIC CARBOXYMALTOSE
     Indication: Iron deficiency anaemia
     Dosage: 500 MILLIGRAM, QD
     Route: 041
     Dates: start: 20250606, end: 20250606
  2. FERINJECT [Suspect]
     Active Substance: FERRIC CARBOXYMALTOSE
     Dosage: 500 MILLIGRAM, QD
     Route: 041
     Dates: start: 20250613, end: 20250613
  3. FERINJECT [Suspect]
     Active Substance: FERRIC CARBOXYMALTOSE
     Dosage: 500 MILLIGRAM, QD
     Route: 041
     Dates: start: 20250620, end: 20250620

REACTIONS (2)
  - Thrombocytopenia [Recovering/Resolving]
  - Agitation [Unknown]

NARRATIVE: CASE EVENT DATE: 20250718
